FAERS Safety Report 17881078 (Version 10)
Quarter: 2022Q3

REPORT INFORMATION
  Report Type: Report from Study
  Country: US (occurrence: US)
  Receive Date: 20200610
  Receipt Date: 20220919
  Transmission Date: 20221027
  Serious: Yes (Other)
  Sender: FDA-Public Use
  Company Number: US-BOEHRINGERINGELHEIM-2019-BI-034691

PATIENT
  Age: 71 Year
  Sex: Male

DRUGS (28)
  1. GILOTRIF [Suspect]
     Active Substance: AFATINIB
     Indication: Non-small cell lung cancer
     Route: 048
     Dates: start: 201907
  2. BRIMONIDINE TARTRATE [Concomitant]
     Active Substance: BRIMONIDINE TARTRATE
     Indication: Product used for unknown indication
  3. IMODIUM [Concomitant]
     Active Substance: LOPERAMIDE HYDROCHLORIDE
     Indication: Product used for unknown indication
  4. IMODIUM [Concomitant]
     Active Substance: LOPERAMIDE HYDROCHLORIDE
     Route: 065
  5. MECLIZINE HYDROCHLORIDE [Concomitant]
     Active Substance: MECLIZINE HYDROCHLORIDE
     Indication: Product used for unknown indication
  6. MECLIZINE HYDROCHLORIDE [Concomitant]
     Active Substance: MECLIZINE HYDROCHLORIDE
  7. FISH OIL [Concomitant]
     Active Substance: FISH OIL
     Indication: Product used for unknown indication
  8. FISH OIL [Concomitant]
     Active Substance: FISH OIL
  9. TRIAMCINOLONE ACETONIDE [Concomitant]
     Active Substance: TRIAMCINOLONE ACETONIDE
     Indication: Product used for unknown indication
  10. TRIAMCINOLONE ACETONIDE [Concomitant]
     Active Substance: TRIAMCINOLONE ACETONIDE
  11. TAMSULOSIN HYDROCHLORIDE [Concomitant]
     Active Substance: TAMSULOSIN HYDROCHLORIDE
     Indication: Product used for unknown indication
  12. TAMSULOSIN HYDROCHLORIDE [Concomitant]
     Active Substance: TAMSULOSIN HYDROCHLORIDE
  13. XANAX [Concomitant]
     Active Substance: ALPRAZOLAM
     Indication: Product used for unknown indication
  14. XANAX [Concomitant]
     Active Substance: ALPRAZOLAM
  15. VIAGRA [Concomitant]
     Active Substance: SILDENAFIL CITRATE
     Indication: Product used for unknown indication
  16. LISINOPRIL [Concomitant]
     Active Substance: LISINOPRIL
     Indication: Product used for unknown indication
  17. LISINOPRIL [Concomitant]
     Active Substance: LISINOPRIL
  18. SIMVASTATIN [Concomitant]
     Active Substance: SIMVASTATIN
     Indication: Product used for unknown indication
  19. SIMVASTATIN [Concomitant]
     Active Substance: SIMVASTATIN
  20. LOPERAMIDE [Concomitant]
     Active Substance: LOPERAMIDE
     Indication: Product used for unknown indication
  21. PFIZER COVID (12Y UP) VAC(EUA) [Concomitant]
  22. FLOMAX [Concomitant]
     Active Substance: TAMSULOSIN HYDROCHLORIDE
     Indication: Product used for unknown indication
  23. MELOXICAM [Concomitant]
     Active Substance: MELOXICAM
     Indication: Pain
  24. TRAMADOL [Concomitant]
     Active Substance: TRAMADOL
     Indication: Pain
  25. PEPTO-BISMOL [Concomitant]
     Active Substance: BISMUTH SUBSALICYLATE
     Indication: Product used for unknown indication
  26. SIMETHICONE (DIMETHICONE) [Concomitant]
     Active Substance: DIMETHICONE
     Indication: Product used for unknown indication
  27. VITAMINS [Concomitant]
     Active Substance: VITAMINS
     Indication: Product used for unknown indication
  28. DOXYCYCLINE [Concomitant]
     Active Substance: DOXYCYCLINE
     Indication: Product used for unknown indication

REACTIONS (42)
  - Glaucoma [Unknown]
  - Gastrointestinal disorder [Recovered/Resolved]
  - Gastric disorder [Unknown]
  - Urinary tract infection [Unknown]
  - Fatigue [Unknown]
  - Depression [Unknown]
  - Diarrhoea [Unknown]
  - Muscle discomfort [Unknown]
  - Oedema [Unknown]
  - Weight decreased [Unknown]
  - Muscle spasms [Unknown]
  - Nasal dryness [Unknown]
  - Pain in extremity [Unknown]
  - Hair texture abnormal [Unknown]
  - Influenza [Unknown]
  - Adverse drug reaction [Recovered/Resolved]
  - Dermatitis acneiform [Not Recovered/Not Resolved]
  - Swollen tongue [Not Recovered/Not Resolved]
  - Acne [Unknown]
  - Back pain [Unknown]
  - Taste disorder [Unknown]
  - Decreased appetite [Unknown]
  - Pruritus [Unknown]
  - Alopecia [Unknown]
  - Rash [Not Recovered/Not Resolved]
  - Dry mouth [Unknown]
  - White blood cell count increased [Recovered/Resolved]
  - Arthralgia [Not Recovered/Not Resolved]
  - Onychoclasis [Unknown]
  - Dry eye [Not Recovered/Not Resolved]
  - Nasopharyngitis [Not Recovered/Not Resolved]
  - Stomatitis [Unknown]
  - Growth of eyelashes [Unknown]
  - Skin fissures [Unknown]
  - Dry skin [Unknown]
  - Hair colour changes [Unknown]
  - Myalgia [Not Recovered/Not Resolved]
  - Nail cuticle fissure [Not Recovered/Not Resolved]
  - Dry skin [Not Recovered/Not Resolved]
  - Blue toe syndrome [Unknown]
  - Nasal ulcer [Recovered/Resolved]
  - Circumoral swelling [Not Recovered/Not Resolved]
